FAERS Safety Report 8852269 (Version 2)
Quarter: 2016Q1

REPORT INFORMATION
  Report Type: Spontaneous
  Country: US (occurrence: US)
  Receive Date: 20121022
  Receipt Date: 20160209
  Transmission Date: 20160526
  Serious: Yes (Hospitalization)
  Sender: FDA-Public Use
  Company Number: US-ASTRAZENECA-2012SE76132

PATIENT
  Age: 64 Year
  Sex: Female
  Weight: 83.5 kg

DRUGS (12)
  1. LORAZEPAM. [Concomitant]
     Active Substance: LORAZEPAM
     Indication: MUSCLE RELAXANT THERAPY
     Dosage: 1 MG TABLET 1-2 TABLETS EVERY 8 HOURS AS NEEDED, VERY RARELY TAKE
     Route: 048
     Dates: start: 201305
  2. MULTIVITAMINS [Concomitant]
     Active Substance: VITAMINS
  3. MINERALS NOS [Concomitant]
     Active Substance: MINERALS
  4. LETROZOLE. [Concomitant]
     Active Substance: LETROZOLE
     Indication: BREAST CANCER METASTATIC
  5. IBRANCE [Suspect]
     Active Substance: PALBOCICLIB
     Indication: BREAST CANCER METASTATIC
     Dosage: 125 MG CAPSULE ONCE A DAY FOR 21 DAYS, THEN OFF 7 DAYS
     Route: 065
     Dates: start: 201511
  6. FASLODEX [Suspect]
     Active Substance: FULVESTRANT
     Indication: BREAST CANCER METASTATIC
     Route: 030
     Dates: start: 201205
  7. GABAPENTIN. [Concomitant]
     Active Substance: GABAPENTIN
     Indication: NEURALGIA
     Dosage: 2 TABLETS 4 TIMES A DAY AS NEEDED EVERY 6 HOURS
     Route: 048
  8. SINGULAIR [Concomitant]
     Active Substance: MONTELUKAST SODIUM
     Indication: MULTIPLE ALLERGIES
     Dosage: DAILY
     Route: 048
  9. CALCIUM [Concomitant]
     Active Substance: CALCIUM
  10. AFINITOR [Concomitant]
     Active Substance: EVEROLIMUS
     Indication: BREAST CANCER METASTATIC
  11. CRANBERRY. [Concomitant]
     Active Substance: CRANBERRY
     Indication: URINARY TRACT DISCOMFORT
  12. LETROZOLE. [Concomitant]
     Active Substance: LETROZOLE
     Indication: BREAST CANCER METASTATIC
     Dosage: 2.5 MG CAPSULE WITH IBRANCE FOR 21 DAYS, THEN LETROZOLE ALONE FOR 7 DAYS
     Dates: start: 2009, end: 2011

REACTIONS (16)
  - Albumin globulin ratio increased [Unknown]
  - Injection site pain [Unknown]
  - Myalgia [Unknown]
  - Injection site hypoaesthesia [Recovered/Resolved]
  - Injection site mass [Not Recovered/Not Resolved]
  - Body temperature increased [Recovered/Resolved]
  - Aspartate aminotransferase increased [Unknown]
  - Fatigue [Unknown]
  - Injection site bruising [Unknown]
  - Injection site pain [Recovered/Resolved]
  - Asthenia [Unknown]
  - Urinary tract infection [Recovered/Resolved]
  - Platelet count decreased [Recovering/Resolving]
  - Nausea [Unknown]
  - Off label use [Unknown]
  - Hypophagia [Recovered/Resolved]

NARRATIVE: CASE EVENT DATE: 201205
